FAERS Safety Report 8832677 (Version 1)
Quarter: 2012Q4

REPORT INFORMATION
  Report Type: Spontaneous
  Country: US (occurrence: None)
  Receive Date: 20121010
  Receipt Date: 20121010
  Transmission Date: 20130627
  Serious: Yes (Life-Threatening, Hospitalization, Disabling)
  Sender: FDA-Public Use
  Company Number: None

PATIENT
  Age: 59 Year
  Sex: Male
  Weight: 113.4 kg

DRUGS (1)
  1. METHYLPREDNISOLONE ACETATE [Suspect]

REACTIONS (8)
  - Balance disorder [None]
  - Musculoskeletal stiffness [None]
  - Cerebrovascular accident [None]
  - Headache [None]
  - Nausea [None]
  - Dizziness [None]
  - Feeling abnormal [None]
  - Product contamination [None]
